FAERS Safety Report 20193693 (Version 2)
Quarter: 2022Q1

REPORT INFORMATION
  Report Type: Spontaneous
  Country: JP (occurrence: JP)
  Receive Date: 20211216
  Receipt Date: 20220118
  Transmission Date: 20220424
  Serious: Yes (Hospitalization)
  Sender: FDA-Public Use
  Company Number: JP-MYLANLABS-2021M1092992

PATIENT
  Age: 64 Year
  Sex: Male

DRUGS (2)
  1. CARBOPLATIN [Suspect]
     Active Substance: CARBOPLATIN
     Indication: Small cell lung cancer
     Dosage: AUC: 6 MGML-1MIN-1
     Route: 065
  2. ETOPOSIDE [Suspect]
     Active Substance: ETOPOSIDE
     Indication: Small cell lung cancer
     Route: 065

REACTIONS (6)
  - Amoebic colitis [Recovering/Resolving]
  - Ascites [Recovering/Resolving]
  - Gastrointestinal perforation [Recovering/Resolving]
  - Liver abscess [Recovering/Resolving]
  - Portal vein thrombosis [Recovering/Resolving]
  - Septic shock [Recovering/Resolving]
